FAERS Safety Report 9780970 (Version 1)
Quarter: 2013Q4

REPORT INFORMATION
  Report Type: Spontaneous
  Country: US (occurrence: US)
  Receive Date: 20131224
  Receipt Date: 20131224
  Transmission Date: 20140711
  Serious: Yes (Other)
  Sender: FDA-Public Use
  Company Number: US-ASTRAZENECA-2013SE92173

PATIENT
  Age: 41 Year
  Sex: Male

DRUGS (3)
  1. BRILINTA [Suspect]
     Indication: DRESSLER^S SYNDROME
     Route: 048
  2. BRILINTA [Suspect]
     Indication: DRESSLER^S SYNDROME
     Route: 048
  3. BETA BLOCKER [Concomitant]

REACTIONS (2)
  - Atrioventricular block complete [Recovered/Resolved]
  - Syncope [Recovered/Resolved]
